FAERS Safety Report 15309552 (Version 1)
Quarter: 2018Q3

REPORT INFORMATION
  Report Type: Spontaneous
  Country: DE (occurrence: DE)
  Receive Date: 20180823
  Receipt Date: 20180823
  Transmission Date: 20181010
  Serious: Yes (Life-Threatening)
  Sender: FDA-Public Use
  Company Number: DE-TEVA-2018-DE-945346

PATIENT
  Age: 88 Year
  Sex: Male

DRUGS (12)
  1. ULTIBRO [Concomitant]
     Active Substance: GLYCOPYRRONIUM\INDACATEROL
     Dosage: 63/143 ?G EINNAHME SEIT JAHREN
     Route: 048
  2. RISPERIDONE. [Suspect]
     Active Substance: RISPERIDONE
     Route: 048
     Dates: start: 20171128
  3. SIMVASTATIN. [Concomitant]
     Active Substance: SIMVASTATIN
     Dosage: EINNAHME SEIT JAHREN
     Route: 048
  4. SALBUTAMOL [Concomitant]
     Active Substance: ALBUTEROL
     Dosage: EINNAHME SEIT JAHREN
     Route: 048
  5. ASPIRIN. [Concomitant]
     Active Substance: ASPIRIN
     Dosage: EINNAHME SEIT JAHREN
  6. PANTOZOL [Concomitant]
     Active Substance: PANTOPRAZOLE SODIUM
     Dosage: EINNAHME SEIT JAHREN
  7. PIPAMPERON [Suspect]
     Active Substance: PIPAMPERONE HYDROCHLORIDE
     Route: 048
     Dates: start: 20171126, end: 20171128
  8. ENTRESTO [Suspect]
     Active Substance: SACUBITRIL\VALSARTAN
     Dosage: 194 MILLIGRAM DAILY; TAKING FOR YEARS
     Route: 048
     Dates: end: 20171208
  9. RISPERIDONE. [Suspect]
     Active Substance: RISPERIDONE
     Dosage: .5 MILLIGRAM DAILY;
     Route: 048
     Dates: start: 20171126, end: 20171127
  10. NITRENDIPINE [Suspect]
     Active Substance: NITRENDIPINE
     Dosage: 30 MILLIGRAM DAILY; TAKING FOR YEARS
     Route: 048
  11. BISOPROLOL [Suspect]
     Active Substance: BISOPROLOL
     Dosage: 2.5 MILLIGRAM DAILY; TAKING FOR YEARS
     Route: 065
  12. PIPAMPERON [Suspect]
     Active Substance: PIPAMPERONE HYDROCHLORIDE
     Dosage: 60 MILLIGRAM DAILY;
     Route: 065
     Dates: start: 20171129

REACTIONS (3)
  - Hypotension [Recovered/Resolved]
  - Dizziness [Recovered/Resolved]
  - Loss of consciousness [Recovered/Resolved]

NARRATIVE: CASE EVENT DATE: 20171208
